FAERS Safety Report 9145548 (Version 9)
Quarter: 2013Q4

REPORT INFORMATION
  Report Type: Spontaneous
  Country: US (occurrence: US)
  Receive Date: 20130307
  Receipt Date: 20131226
  Transmission Date: 20140711
  Serious: Yes (Other)
  Sender: FDA-Public Use
  Company Number: US-PFIZER INC-2013078775

PATIENT
  Age: 70 Year
  Sex: Female
  Weight: 72.11 kg

DRUGS (9)
  1. LYRICA [Suspect]
     Indication: SCIATICA
     Dosage: 150 MG, 4X/DAY
     Route: 048
     Dates: start: 200710
  2. LYRICA [Suspect]
     Indication: NERVE COMPRESSION
     Dosage: 150 MG, UNK
     Route: 048
  3. CEFDINIR [Suspect]
     Indication: BRONCHITIS
     Dosage: 300 MG, AS NEEDED
     Dates: start: 2010
  4. CEFDINIR [Suspect]
     Indication: INFECTION
     Dosage: 300 MG, EVERY 12 HOURS
     Route: 048
     Dates: start: 20121207, end: 20121217
  5. PROVIGIL [Suspect]
     Indication: SLEEP DISORDER
     Dosage: 200 MG, 2X/DAY
     Route: 048
  6. ALBUTEROL [Concomitant]
     Dosage: UNK
  7. DIAZEPAM [Concomitant]
     Indication: ANXIETY
     Dosage: 10 MG, UNK
  8. SYNTHROID [Concomitant]
     Indication: THYROID DISORDER
     Dosage: 125 UG, DAILY
  9. THYROID [Concomitant]
     Indication: THYROID DISORDER
     Dosage: 100 UG, 1X/DAY (1/D)

REACTIONS (24)
  - Drug hypersensitivity [Unknown]
  - Dyspnoea [Not Recovered/Not Resolved]
  - Dementia [Unknown]
  - Fall [Unknown]
  - Coordination abnormal [Unknown]
  - Back pain [Unknown]
  - Stress [Unknown]
  - Fatigue [Unknown]
  - Anxiety [Not Recovered/Not Resolved]
  - Nervousness [Not Recovered/Not Resolved]
  - Emotional disorder [Not Recovered/Not Resolved]
  - Anger [Not Recovered/Not Resolved]
  - Foreign body [Unknown]
  - Insomnia [Unknown]
  - Burning sensation [Unknown]
  - Nasopharyngitis [Not Recovered/Not Resolved]
  - Cough [Not Recovered/Not Resolved]
  - Drug intolerance [Unknown]
  - Hot flush [Unknown]
  - Feeling cold [Unknown]
  - Dizziness [Recovered/Resolved]
  - Hair growth abnormal [Unknown]
  - Delusional perception [Unknown]
  - Infection [Unknown]
